FAERS Safety Report 25746215 (Version 1)
Quarter: 2025Q3

REPORT INFORMATION
  Report Type: Spontaneous
  Country: CN (occurrence: CN)
  Receive Date: 20250901
  Receipt Date: 20250901
  Transmission Date: 20251020
  Serious: Yes (Hospitalization, Other)
  Sender: SANOFI AVENTIS
  Company Number: CN-SA-2025SA255745

PATIENT
  Age: 62 Year
  Sex: Female
  Weight: 48 kg

DRUGS (3)
  1. FABRAZYME [Suspect]
     Active Substance: AGALSIDASE BETA
     Indication: Breast neoplasm
     Dosage: 0.4 G, QD
     Route: 041
     Dates: start: 20250728, end: 20250728
  2. SACITUZUMAB TIRUMOTECAN [Suspect]
     Active Substance: SACITUZUMAB TIRUMOTECAN
     Indication: Breast neoplasm
     Route: 041
     Dates: start: 20250726, end: 20250726
  3. BEVACIZUMAB [Concomitant]
     Active Substance: BEVACIZUMAB
     Indication: Antiangiogenic therapy
     Route: 041
     Dates: start: 20250728, end: 20250728

REACTIONS (6)
  - Myelosuppression [Recovering/Resolving]
  - Dizziness [Unknown]
  - Asthenia [Unknown]
  - Platelet count decreased [Recovering/Resolving]
  - Haemorrhage subcutaneous [Unknown]
  - Product use in unapproved indication [Unknown]

NARRATIVE: CASE EVENT DATE: 20250728
